FAERS Safety Report 4842477-3 (Version None)
Quarter: 2005Q4

REPORT INFORMATION
  Report Type: 
  Country: None (occurrence: None)
  Receive Date: 20051129
  Receipt Date: 20051116
  Transmission Date: 20060501
  Serious: Yes (Hospitalization)
  Sender: FDA-Public Use
  Company Number: 2005099186

PATIENT
  Age: 70 Year
  Sex: Female

DRUGS (8)
  1. NEURONTIN [Suspect]
     Indication: NEUROPATHY PERIPHERAL
     Dosage: 600 MG (300 MG, 2 IN 1 D), ORAL
     Route: 048
     Dates: start: 20050208, end: 20050421
  2. DITROPAN [Concomitant]
  3. LOVASTATIN [Concomitant]
  4. ATENOLOL [Concomitant]
  5. OXYBUTYNIN (OXYBUTYNIN HYDROCHLORIDE) [Concomitant]
  6. PREDNISONE [Concomitant]
  7. ALL OTHER THERAPEUTIC PRODUCTS (ALL OTHER THERAPEUTIC PRODUCTS) [Concomitant]
  8. KLOR-CON [Concomitant]

REACTIONS (8)
  - ACUTE FEBRILE NEUTROPHILIC DERMATOSIS [None]
  - CONDITION AGGRAVATED [None]
  - DERMATITIS CONTACT [None]
  - EPIDERMAL NECROSIS [None]
  - HYPERSENSITIVITY [None]
  - LEUKOCYTOCLASTIC VASCULITIS [None]
  - POLYMYALGIA RHEUMATICA [None]
  - SKIN HAEMORRHAGE [None]
